FAERS Safety Report 7214794-3 (Version None)
Quarter: 2011Q1

REPORT INFORMATION
  Report Type: 
  Country: None (occurrence: None)
  Receive Date: 20110107
  Receipt Date: 20100226
  Transmission Date: 20110831
  Serious: No
  Sender: FDA-Public Use
  Company Number: A0847036A

PATIENT
  Sex: Female

DRUGS (13)
  1. CALCITRATE [Concomitant]
  2. QUESTRAN LIGHT [Concomitant]
  3. PINDOLOL [Concomitant]
  4. LIPITOR [Concomitant]
  5. ZETIA [Concomitant]
  6. NEXUM [Concomitant]
  7. DILTIAZEM CD [Concomitant]
  8. HYOSCYAMINE SULFATE [Concomitant]
  9. FAMOTIDINE [Concomitant]
  10. SYMBICORT [Concomitant]
  11. PREDNISONE [Concomitant]
  12. ALBUTEROL [Concomitant]
  13. LOVAZA [Suspect]
     Dosage: 2CAPL TWICE PER DAY
     Route: 048
     Dates: start: 20100211

REACTIONS (2)
  - FLATULENCE [None]
  - ABDOMINAL DISCOMFORT [None]
